FAERS Safety Report 5088644-8 (Version None)
Quarter: 2006Q3

REPORT INFORMATION
  Report Type: 
  Country: None (occurrence: None)
  Receive Date: 20060822
  Receipt Date: 20060815
  Transmission Date: 20061208
  Serious: Yes (Hospitalization)
  Sender: FDA-Public Use
  Company Number: 227830

PATIENT
  Age: 56 Year
  Sex: Female
  Weight: 95.7 kg

DRUGS (2)
  1. AVASTIN [Suspect]
     Indication: METASTATIC MALIGNANT MELANOMA
     Dosage: 960 MG, Q2W, INTRAVENOUS
     Route: 042
     Dates: start: 20060329
  2. ERLOTINIB (ERLOTINIB) TABLET, 150 MG [Suspect]
     Indication: METASTATIC MALIGNANT MELANOMA
     Dosage: 150 MG, QD, ORAL
     Route: 048
     Dates: start: 20060329

REACTIONS (13)
  - ABDOMINAL PAIN UPPER [None]
  - ASTHENIA [None]
  - CHROMATURIA [None]
  - GALLBLADDER DISORDER [None]
  - HEPATOMEGALY [None]
  - HYPERHIDROSIS [None]
  - HYPOTENSION [None]
  - METASTASES TO LIVER [None]
  - NAUSEA [None]
  - PAIN [None]
  - SPLENOMEGALY [None]
  - URINE OUTPUT DECREASED [None]
  - VOMITING [None]
